FAERS Safety Report 7632562-5 (Version None)
Quarter: 2011Q3

REPORT INFORMATION
  Report Type: 
  Country: None (occurrence: None)
  Receive Date: 20110725
  Receipt Date: 20101014
  Transmission Date: 20111222
  Serious: Yes (Other)
  Sender: FDA-Public Use
  Company Number: US-BRISTOL-MYERS SQUIBB COMPANY-15333842

PATIENT
  Age: 53 Year
  Sex: Male
  Weight: 129 kg

DRUGS (6)
  1. NEXIUM [Concomitant]
  2. COUMADIN [Suspect]
     Dosage: DOSE INCREASED TO 17MG
     Route: 048
     Dates: start: 20090801
  3. JANUVIA [Concomitant]
  4. ACTOS [Concomitant]
  5. LYRICA [Concomitant]
  6. VITAMIN TAB [Concomitant]

REACTIONS (1)
  - INTERNATIONAL NORMALISED RATIO DECREASED [None]
